FAERS Safety Report 13061323 (Version 3)
Quarter: 2018Q3

REPORT INFORMATION
  Report Type: Spontaneous
  Country: IE (occurrence: IE)
  Receive Date: 20161226
  Receipt Date: 20180709
  Transmission Date: 20181010
  Serious: Yes (Hospitalization)
  Sender: FDA-Public Use
  Company Number: IE-ABBVIE-16K-229-1816281-00

PATIENT
  Sex: Female

DRUGS (4)
  1. METHOTREXATE. [Suspect]
     Active Substance: METHOTREXATE
     Indication: PSORIASIS
     Route: 065
     Dates: start: 200610, end: 200711
  2. ETANERCEPT [Suspect]
     Active Substance: ETANERCEPT
     Indication: PSORIASIS
     Route: 065
     Dates: start: 200907, end: 201104
  3. HUMIRA [Suspect]
     Active Substance: ADALIMUMAB
     Indication: PSORIASIS
     Route: 058
     Dates: start: 201105, end: 201606
  4. FUMARIC ACID [Suspect]
     Active Substance: FUMARIC ACID
     Indication: PSORIASIS
     Route: 065
     Dates: start: 200711, end: 200905

REACTIONS (4)
  - Neuropsychiatric syndrome [Recovered/Resolved]
  - Demyelination [Recovered/Resolved]
  - Psoriasis [Unknown]
  - Balance disorder [Recovered/Resolved]
